FAERS Safety Report 11841554 (Version 3)
Quarter: 2016Q3

REPORT INFORMATION
  Report Type: Spontaneous
  Country: US (occurrence: US)
  Receive Date: 20151216
  Receipt Date: 20160810
  Transmission Date: 20161109
  Serious: Yes (Death, Hospitalization)
  Sender: FDA-Public Use
  Company Number: US-JNJFOC-20151211389

PATIENT
  Age: 27 Year
  Sex: Female

DRUGS (1)
  1. XARELTO [Suspect]
     Active Substance: RIVAROXABAN
     Indication: PULMONARY EMBOLISM
     Route: 048
     Dates: start: 201311, end: 201403

REACTIONS (7)
  - Gastrointestinal haemorrhage [Unknown]
  - Subdural haematoma [Unknown]
  - Post procedural haematoma [Unknown]
  - Pharyngeal haemorrhage [Unknown]
  - Right ventricular failure [Fatal]
  - Cerebral haemorrhage [Unknown]
  - Epistaxis [Unknown]

NARRATIVE: CASE EVENT DATE: 20140322
